FAERS Safety Report 5687634-1 (Version None)
Quarter: 2008Q1

REPORT INFORMATION
  Report Type: 
  Country: None (occurrence: None)
  Receive Date: 20080328
  Receipt Date: 20080314
  Transmission Date: 20080703
  Serious: Yes (Other)
  Sender: FDA-Public Use
  Company Number: US-BAYER-200811076BCC

PATIENT
  Age: 19 Year
  Sex: Female
  Weight: 61 kg

DRUGS (6)
  1. MILK OF MAGNESIA TAB [Suspect]
     Indication: CONSTIPATION
     Route: 048
     Dates: start: 20080314
  2. AMOXICILLIN [Concomitant]
  3. RANITIDINE [Concomitant]
  4. SERTRALINE [Concomitant]
  5. ACIDOPHILUS [Concomitant]
  6. ACNE MEDICATION [Concomitant]

REACTIONS (2)
  - ANORECTAL DISCOMFORT [None]
  - RECTAL HAEMORRHAGE [None]
